FAERS Safety Report 22745881 (Version 3)
Quarter: 2024Q2

REPORT INFORMATION
  Report Type: Report from Study
  Country: RU (occurrence: RU)
  Receive Date: 20230725
  Receipt Date: 20240523
  Transmission Date: 20240715
  Serious: Yes (Death, Other)
  Sender: FDA-Public Use
  Company Number: RU-002147023-NVSC2023RU162879

PATIENT
  Age: 53 Year
  Sex: Female
  Weight: 74 kg

DRUGS (2)
  1. PIQRAY [Suspect]
     Active Substance: ALPELISIB
     Indication: Breast cancer
     Dosage: 300 MG, QD
     Route: 048
     Dates: start: 202303
  2. PIQRAY [Suspect]
     Active Substance: ALPELISIB
     Indication: Metastases to bone

REACTIONS (3)
  - Asphyxia [Fatal]
  - Completed suicide [Fatal]
  - Metastases to liver [Unknown]
